FAERS Safety Report 5106558-1 (Version None)
Quarter: 2006Q3

REPORT INFORMATION
  Report Type: 
  Country: None (occurrence: None)
  Receive Date: 20060918
  Receipt Date: 20060908
  Transmission Date: 20061208
  Serious: Yes (Other)
  Sender: FDA-Public Use
  Company Number: JP-JPN-A200603610

PATIENT
  Sex: Female

DRUGS (6)
  1. PAXIL [Suspect]
     Dosage: 10MG PER DAY
     Route: 048
     Dates: start: 20060804, end: 20060901
  2. CALBLOCK [Suspect]
     Route: 048
  3. BLOPRESS [Suspect]
     Route: 048
  4. MYSLEE [Concomitant]
     Route: 048
  5. RIZE [Concomitant]
     Route: 048
  6. PROMAC [Concomitant]
     Route: 048

REACTIONS (3)
  - ALANINE AMINOTRANSFERASE INCREASED [None]
  - ASPARTATE AMINOTRANSFERASE INCREASED [None]
  - LIVER DISORDER [None]
